FAERS Safety Report 4587467-3 (Version None)
Quarter: 2005Q1

REPORT INFORMATION
  Report Type: 
  Country: None (occurrence: None)
  Receive Date: 20050215
  Receipt Date: 20050204
  Transmission Date: 20050727
  Serious: Yes (Other)
  Sender: FDA-Public Use
  Company Number: DE-2005-000559

PATIENT
  Age: 37 Year
  Sex: Female
  Weight: 50 kg

DRUGS (1)
  1. MIRENA [Suspect]
     Dosage: 20 UG/DAY, CONT, INTRA-UTERINE
     Route: 015
     Dates: start: 19990301

REACTIONS (4)
  - FOOT FRACTURE [None]
  - INTERVERTEBRAL DISC OPERATION [None]
  - MENORRHAGIA [None]
  - THROMBOSIS [None]
